FAERS Safety Report 8473174-3 (Version None)
Quarter: 2012Q2

REPORT INFORMATION
  Report Type: 
  Country: None (occurrence: None)
  Receive Date: 20120627
  Receipt Date: 20120614
  Transmission Date: 20120825
  Serious: Yes (Hospitalization, Other)
  Sender: FDA-Public Use
  Company Number: CHPA2012US013022

PATIENT
  Age: 68 Year
  Sex: Female

DRUGS (2)
  1. EXCEDRIN EXTRA STRENGTH TABLETS [Suspect]
     Indication: MIGRAINE
     Dosage: 2 TO 6 DF, A DAY
     Route: 048
  2. EXCEDRIN (MIGRAINE) [Suspect]
     Dosage: UNK, UNK
     Dates: start: 19980101

REACTIONS (5)
  - JOINT CONTRACTURE [None]
  - PAIN IN EXTREMITY [None]
  - ARTHRITIS [None]
  - MYOCARDIAL INFARCTION [None]
  - CARDIAC DISORDER [None]
